APPROVED DRUG PRODUCT: ACETAMINOPHEN AND IBUPROFEN
Active Ingredient: ACETAMINOPHEN; IBUPROFEN
Strength: 250MG;125MG
Dosage Form/Route: TABLET;ORAL
Application: A220126 | Product #001
Applicant: LNK INTERNATIONAL INC
Approved: Dec 11, 2025 | RLD: No | RS: No | Type: OTC